FAERS Safety Report 24209073 (Version 1)
Quarter: 2024Q3

REPORT INFORMATION
  Report Type: Spontaneous
  Country: US (occurrence: US)
  Receive Date: 20240814
  Receipt Date: 20240814
  Transmission Date: 20241017
  Serious: No
  Sender: SANOFI AVENTIS
  Company Number: US-SA-SAC20240808001150

PATIENT
  Age: 19 Year
  Sex: Female

DRUGS (1)
  1. DUPIXENT [Suspect]
     Active Substance: DUPILUMAB
     Indication: Eczema
     Dosage: DOSE : 300MG FREQUENCY: EVERY 14 DAYS
     Route: 058
     Dates: start: 202403

REACTIONS (4)
  - Eczema [Not Recovered/Not Resolved]
  - Lip dry [Not Recovered/Not Resolved]
  - Lip pruritus [Not Recovered/Not Resolved]
  - Skin exfoliation [Not Recovered/Not Resolved]

NARRATIVE: CASE EVENT DATE: 20240601
